FAERS Safety Report 17511685 (Version 1)
Quarter: 2020Q1

REPORT INFORMATION
  Report Type: Spontaneous
  Country: US (occurrence: US)
  Receive Date: 20200306
  Receipt Date: 20200306
  Transmission Date: 20200409
  Serious: Yes (Death, Hospitalization, Other)
  Sender: FDA-Public Use
  Company Number: US-GALDERMA-US2020011509

PATIENT
  Age: 64 Year
  Sex: Male

DRUGS (11)
  1. SIMVASTATIN. [Concomitant]
     Active Substance: SIMVASTATIN
     Indication: PRODUCT USED FOR UNKNOWN INDICATION
     Route: 065
  2. DIPHENHYDRAMINE. [Concomitant]
     Active Substance: DIPHENHYDRAMINE
     Indication: PROPHYLAXIS
     Route: 065
  3. RIVAROXABAN [Concomitant]
     Active Substance: RIVAROXABAN
     Indication: PRODUCT USED FOR UNKNOWN INDICATION
     Route: 065
  4. FUROSEMIDE. [Concomitant]
     Active Substance: FUROSEMIDE
     Indication: PRODUCT USED FOR UNKNOWN INDICATION
     Route: 065
  5. ALLOPURINOL. [Concomitant]
     Active Substance: ALLOPURINOL
     Indication: PRODUCT USED FOR UNKNOWN INDICATION
     Route: 065
  6. CYCLOBENZAPRINE. [Concomitant]
     Active Substance: CYCLOBENZAPRINE
     Indication: FLANK PAIN
     Route: 065
  7. POTASSIUM CHLORIDE. [Concomitant]
     Active Substance: POTASSIUM CHLORIDE
     Indication: PRODUCT USED FOR UNKNOWN INDICATION
     Route: 065
  8. IBUPROFEN. [Concomitant]
     Active Substance: IBUPROFEN
     Indication: PRODUCT USED FOR UNKNOWN INDICATION
     Route: 065
  9. SOTALOL. [Concomitant]
     Active Substance: SOTALOL
     Indication: PRODUCT USED FOR UNKNOWN INDICATION
     Route: 065
  10. EPLERENONE. [Concomitant]
     Active Substance: EPLERENONE
     Indication: PRODUCT USED FOR UNKNOWN INDICATION
     Route: 065
  11. DOXYCYCLINE. [Suspect]
     Active Substance: DOXYCYCLINE
     Indication: SINUSITIS
     Route: 065

REACTIONS (35)
  - Coccidioidomycosis [Fatal]
  - Hilar lymphadenopathy [Unknown]
  - Lymphadenopathy mediastinal [Unknown]
  - Enterobacter infection [Unknown]
  - Diarrhoea [Unknown]
  - Oedema peripheral [Unknown]
  - Urine output decreased [Unknown]
  - Early satiety [Unknown]
  - Oral pain [Unknown]
  - Intentional product use issue [Recovered/Resolved]
  - Glomerulonephritis rapidly progressive [Fatal]
  - Abdominal distension [Unknown]
  - Drug ineffective for unapproved indication [Unknown]
  - Respiratory failure [Unknown]
  - Pneumonia [Unknown]
  - Cardiac failure congestive [Unknown]
  - Azotaemia [Unknown]
  - Cough [Unknown]
  - Urticaria [Unknown]
  - Acidosis [Unknown]
  - Haematuria [Unknown]
  - Pulmonary oedema [Unknown]
  - Weight increased [Unknown]
  - Dyspnoea exertional [Unknown]
  - Nausea [Unknown]
  - Orthopnoea [Unknown]
  - Oropharyngeal pain [Unknown]
  - Diffuse alveolar damage [Unknown]
  - Cytomegalovirus viraemia [Unknown]
  - Productive cough [Unknown]
  - Proteinuria [Unknown]
  - Mouth ulceration [Unknown]
  - Acute kidney injury [Unknown]
  - Respiratory distress [Unknown]
  - Hypoxia [Unknown]
